FAERS Safety Report 4440854-6 (Version None)
Quarter: 2004Q3

REPORT INFORMATION
  Report Type: 
  Country: None (occurrence: None)
  Receive Date: 20040903
  Receipt Date: 20040820
  Transmission Date: 20050211
  Serious: Yes (Other)
  Sender: FDA-Public Use
  Company Number: 001#1#2004-00170

PATIENT
  Age: 50 Year
  Sex: Male

DRUGS (1)
  1. ATMADISC [Suspect]
     Route: 055

REACTIONS (1)
  - DRUG ABUSER [None]
